FAERS Safety Report 5259732-8 (Version None)
Quarter: 2007Q1

REPORT INFORMATION
  Report Type: 
  Country: None (occurrence: None)
  Receive Date: 20070309
  Receipt Date: 20070302
  Transmission Date: 20070707
  Serious: Yes (Death, Hospitalization, Other)
  Sender: FDA-Public Use
  Company Number: PHEH2007US01532

PATIENT
  Age: 77 Year
  Sex: Female
  Weight: 43.083 kg

DRUGS (13)
  1. EXJADE [Suspect]
     Indication: IRON OVERLOAD
     Dosage: 1000 MG, QD
     Route: 048
     Dates: start: 20060809, end: 20070109
  2. EXJADE [Suspect]
     Dosage: 500 MG, BID
     Route: 048
     Dates: end: 20070129
  3. MIRALAX [Concomitant]
     Dosage: 17 G, QD
     Route: 048
  4. MULTI-VITAMIN [Concomitant]
     Dosage: 1 TABLET QD
     Route: 048
  5. ASCORBIC ACID [Concomitant]
     Dosage: 250 MG, TID
     Route: 048
  6. MYCELEX [Concomitant]
     Dosage: 10 MG, QD
     Route: 048
  7. DIGOXIN [Concomitant]
     Dosage: 0.125 MCG QD
     Route: 048
  8. NEXIUM [Concomitant]
     Dosage: 40 MG, UNK
     Route: 048
  9. LASIX [Concomitant]
     Dosage: 40 MG, QD
     Route: 048
  10. LISINOPRIL [Concomitant]
     Dosage: 5 MG, QD
     Route: 048
  11. METFORMIN HCL [Concomitant]
     Dosage: 500 MG, BID
     Route: 048
  12. POTASSIUM CHLORIDE [Concomitant]
     Dosage: 20 MEQ, QD
     Route: 048
  13. PREDNISONE [Concomitant]

REACTIONS (16)
  - ALANINE AMINOTRANSFERASE INCREASED [None]
  - ASTHENIA [None]
  - BALANCE DISORDER [None]
  - CHRONIC INFLAMMATORY DEMYELINATING POLYRADICULONEUROPATHY [None]
  - CONFUSIONAL STATE [None]
  - CSF PROTEIN INCREASED [None]
  - CULTURE URINE POSITIVE [None]
  - DECREASED APPETITE [None]
  - HYPOTONIA [None]
  - JOINT RANGE OF MOTION DECREASED [None]
  - MUSCULAR WEAKNESS [None]
  - NECK PAIN [None]
  - PAIN IN EXTREMITY [None]
  - PERIPHERAL PARALYSIS [None]
  - SERUM FERRITIN INCREASED [None]
  - SPINAL LAMINECTOMY [None]
